FAERS Safety Report 8830629 (Version 1)
Quarter: 2012Q4

REPORT INFORMATION
  Report Type: 
  Country: US (occurrence: US)
  Receive Date: 20121009
  Receipt Date: 20121009
  Transmission Date: 20130627
  Serious: Yes (Other)
  Sender: FDA-Public Use
  Company Number: US-JNJFOC-20121002292

PATIENT
  Age: 37 Year
  Sex: Male

DRUGS (2)
  1. ROGAINE FOR MEN EXTRA STRENGTH FOAM UNSCENTED [Suspect]
     Route: 061
  2. ROGAINE FOR MEN EXTRA STRENGTH FOAM UNSCENTED [Suspect]
     Indication: ALOPECIA
     Route: 061
     Dates: start: 2011

REACTIONS (2)
  - Staphylococcal infection [Recovering/Resolving]
  - Underdose [Unknown]
